FAERS Safety Report 13497154 (Version 3)
Quarter: 2017Q4

REPORT INFORMATION
  Report Type: Report from Study
  Country: JP (occurrence: JP)
  Receive Date: 20170428
  Receipt Date: 20171229
  Transmission Date: 20180320
  Serious: Yes (Death, Other)
  Sender: FDA-Public Use
  Company Number: JP-INCYTE CORPORATION-2017IN003161

PATIENT

DRUGS (6)
  1. JAKAVI [Suspect]
     Active Substance: RUXOLITINIB
     Dosage: 5 MG, QD
     Route: 048
     Dates: start: 20151117, end: 20151215
  2. JAKAVI [Suspect]
     Active Substance: RUXOLITINIB
     Indication: POLYCYTHAEMIA VERA
     Dosage: 5 MG, QD
     Route: 048
     Dates: start: 20151010, end: 20151019
  3. JAKAVI [Suspect]
     Active Substance: RUXOLITINIB
     Dosage: 5 MG, BID
     Route: 048
     Dates: start: 20151020, end: 20151105
  4. MABLIN [Concomitant]
     Active Substance: BUSULFAN
     Indication: POLYCYTHAEMIA VERA
     Dosage: 2 MG, QD
     Route: 048
     Dates: start: 20151202
  5. HYDREA [Concomitant]
     Active Substance: HYDROXYUREA
     Route: 048
  6. HYDREA [Concomitant]
     Active Substance: HYDROXYUREA
     Indication: POLYCYTHAEMIA VERA
     Dosage: UNK

REACTIONS (5)
  - Polycythaemia vera [Unknown]
  - Platelet count decreased [Unknown]
  - Hepatitis infectious mononucleosis [Fatal]
  - Drug-induced liver injury [Recovering/Resolving]
  - Epstein-Barr viraemia [Fatal]

NARRATIVE: CASE EVENT DATE: 20151105
